FAERS Safety Report 5087734-3 (Version None)
Quarter: 2006Q3

REPORT INFORMATION
  Report Type: 
  Country: None (occurrence: None)
  Receive Date: 20060822
  Receipt Date: 20060822
  Transmission Date: 20061208
  Serious: Yes (Other)
  Sender: FDA-Public Use
  Company Number: None

PATIENT
  Age: 43 Year
  Sex: Female
  Weight: 58.9676 kg

DRUGS (1)
  1. CREST PRO-HEALTH RINSE CREST [Suspect]

REACTIONS (2)
  - DYSGEUSIA [None]
  - TOOTH DISCOLOURATION [None]
